FAERS Safety Report 9769571 (Version 1)
Quarter: 2013Q4

REPORT INFORMATION
  Report Type: Spontaneous
  Country: US (occurrence: US)
  Receive Date: 20131218
  Receipt Date: 20131218
  Transmission Date: 20140711
  Serious: No
  Sender: FDA-Public Use
  Company Number: US-SHIONOGI, INC-2013000362

PATIENT
  Sex: Female

DRUGS (1)
  1. OSPHENA [Suspect]
     Indication: DYSPAREUNIA
     Dosage: 60 MG, UNK
     Route: 065
     Dates: start: 2013, end: 2013

REACTIONS (2)
  - Dizziness [Unknown]
  - Feeling abnormal [Unknown]
